FAERS Safety Report 4868415-5 (Version None)
Quarter: 2005Q4

REPORT INFORMATION
  Report Type: 
  Country: None (occurrence: None)
  Receive Date: 20051223
  Receipt Date: 20051216
  Transmission Date: 20060501
  Serious: Yes (Hospitalization)
  Sender: FDA-Public Use
  Company Number: 216322

PATIENT
  Age: 52 Year
  Sex: Male
  Weight: 87.5 kg

DRUGS (13)
  1. AVASTIN [Suspect]
     Indication: RENAL CELL CARCINOMA STAGE UNSPECIFIED
     Dosage: 10 MG/KG, INTRAVENOUS
     Route: 042
     Dates: start: 20050209, end: 20050603
  2. ERLOTINIB (ERLOTINIB) [Suspect]
     Indication: RENAL CELL CARCINOMA STAGE UNSPECIFIED
     Dosage: 300 MG, ORAL
     Route: 048
     Dates: start: 20050209, end: 20050616
  3. MINOCYCLINE HCL [Concomitant]
  4. COREG [Concomitant]
  5. GLEEVEC [Suspect]
     Indication: RENAL CELL CARCINOMA STAGE UNSPECIFIED
     Dosage: 100 MG, ORAL
     Route: 048
     Dates: start: 20050209, end: 20050618
  6. FLUDROCORTISONE (FLUDROCORTISONE ACETATE) [Concomitant]
  7. HYDROCORT (HYDROCORTISONE) [Concomitant]
  8. OS-CAL (CALCIUM CARBONATE) [Concomitant]
  9. ZOMETA [Concomitant]
  10. CLONIDINE [Concomitant]
  11. CORTEF [Concomitant]
  12. MOTOFEN                            (ATROPINE SULFATE, DIFENOXIN) [Concomitant]
  13. LOMOTIL [Concomitant]

REACTIONS (2)
  - BACTERIAL INFECTION [None]
  - PERIRECTAL ABSCESS [None]
